FAERS Safety Report 20771748 (Version 3)
Quarter: 2022Q2

REPORT INFORMATION
  Report Type: Spontaneous
  Country: GB (occurrence: GB)
  Receive Date: 20220430
  Receipt Date: 20220523
  Transmission Date: 20220721
  Serious: Yes (Other)
  Sender: FDA-Public Use
  Company Number: GB-SAMSUNG BIOEPIS-SB-2022-09599

PATIENT
  Age: 49 Year
  Sex: Female

DRUGS (3)
  1. LEFLUNOMIDE [Suspect]
     Active Substance: LEFLUNOMIDE
     Indication: Product used for unknown indication
     Dosage: UNK
     Route: 065
  2. IMRALDI [Suspect]
     Active Substance: ADALIMUMAB
     Indication: Psoriatic arthropathy
     Dosage: 40 MILLIGRAM (TWO TIMES A WEEK)
     Route: 058
     Dates: start: 20220404
  3. IMRALDI [Suspect]
     Active Substance: ADALIMUMAB
     Dosage: 40 MILLIGRAM(EVERY WEEK)
     Route: 058
     Dates: start: 20220328

REACTIONS (16)
  - White blood cell count increased [Unknown]
  - Nasopharyngitis [Unknown]
  - Feeling abnormal [Unknown]
  - Facial pain [Unknown]
  - Eye pain [Unknown]
  - Psoriatic arthropathy [Unknown]
  - Sinusitis [Recovered/Resolved]
  - Anxiety [Unknown]
  - Malaise [Recovered/Resolved]
  - Headache [Unknown]
  - Feeling cold [Unknown]
  - Chills [Unknown]
  - Dry skin [Not Recovered/Not Resolved]
  - Pain in extremity [Unknown]
  - Dysphagia [Unknown]
  - Drug ineffective [Unknown]
